FAERS Safety Report 5702163-4 (Version None)
Quarter: 2008Q2

REPORT INFORMATION
  Report Type: 
  Country: None (occurrence: None)
  Receive Date: 20080411
  Receipt Date: 20080404
  Transmission Date: 20081010
  Serious: Yes (Death, Hospitalization)
  Sender: FDA-Public Use
  Company Number: US-ASTRAZENECA-1998UW49384

PATIENT
  Age: 85 Year
  Sex: Male
  Weight: 68.6 kg

DRUGS (12)
  1. SEROQUEL [Suspect]
     Indication: PSYCHOTIC DISORDER
     Route: 048
     Dates: start: 19981009, end: 19981001
  2. SEROQUEL [Suspect]
     Dosage: DOSE REDUCED
     Route: 048
     Dates: start: 19981001, end: 19981031
  3. ACETYLSALICYLIC ACID SRT [Concomitant]
     Indication: PROPHYLAXIS
     Route: 048
     Dates: start: 19981009
  4. ACETAZOLAMIDE [Concomitant]
     Indication: GLAUCOMA
     Route: 048
     Dates: start: 19981009
  5. TIMOLOL MALEATE [Concomitant]
     Indication: GLAUCOMA
     Route: 047
     Dates: start: 19981009
  6. BISACODYL [Concomitant]
     Indication: CONSTIPATION
     Route: 054
     Dates: start: 19981009
  7. ARTIFICIAL TEARS [Concomitant]
     Indication: DRY EYE
     Route: 047
     Dates: start: 19981009
  8. SENNA [Concomitant]
     Indication: CONSTIPATION
     Route: 048
     Dates: start: 19981009
  9. PIPERACILLIN AND TAZOBACTAM [Concomitant]
  10. HYDROCORTISONE CREAM [Concomitant]
  11. CLOTRIMAZOLE [Concomitant]
  12. ACETAMINOPHEN W/ CODEINE [Concomitant]

REACTIONS (1)
  - PNEUMONIA ASPIRATION [None]
